FAERS Safety Report 14498872 (Version 1)
Quarter: 2018Q1

REPORT INFORMATION
  Report Type: Spontaneous
  Country: FR (occurrence: FR)
  Receive Date: 20180207
  Receipt Date: 20180207
  Transmission Date: 20180509
  Serious: Yes (Other)
  Sender: FDA-Public Use
  Company Number: FR-PFIZER INC-2018046875

PATIENT
  Age: 66 Year
  Sex: Female
  Weight: 110 kg

DRUGS (1)
  1. NEURONTIN [Suspect]
     Active Substance: GABAPENTIN
     Indication: PAIN
     Dosage: 1 DF, SINGLE
     Route: 048
     Dates: start: 20180111

REACTIONS (3)
  - Dyspnoea [Recovered/Resolved]
  - Laryngeal oedema [Recovered/Resolved]
  - Larynx irritation [Recovered/Resolved]

NARRATIVE: CASE EVENT DATE: 20180111
